FAERS Safety Report 8278064-7 (Version None)
Quarter: 2012Q2

REPORT INFORMATION
  Report Type: 
  Country: None (occurrence: None)
  Receive Date: 20120412
  Receipt Date: 20120403
  Transmission Date: 20120825
  Serious: Yes (Hospitalization)
  Sender: FDA-Public Use
  Company Number: PHHY2012IT028784

PATIENT
  Sex: Female

DRUGS (3)
  1. LEVOFLOXACIN [Suspect]
  2. MEROPENEM [Suspect]
  3. RIFAMPICIN+ISONIAZID+PYRAZINAMIDE [Suspect]

REACTIONS (1)
  - CLOSTRIDIUM DIFFICILE COLITIS [None]
